FAERS Safety Report 16970961 (Version 1)
Quarter: 2019Q4

REPORT INFORMATION
  Report Type: Spontaneous
  Country: US (occurrence: US)
  Receive Date: 20191029
  Receipt Date: 20191029
  Transmission Date: 20200122
  Serious: Yes (Death, Hospitalization, Other)
  Sender: FDA-Public Use
  Company Number: US-SA-2019SA295856

PATIENT
  Age: 74 Year
  Sex: Male

DRUGS (2)
  1. RASBURICASE [Suspect]
     Active Substance: RASBURICASE
     Indication: TUMOUR LYSIS SYNDROME
  2. RASBURICASE [Suspect]
     Active Substance: RASBURICASE
     Indication: HYPERURICAEMIA
     Dosage: UNK

REACTIONS (2)
  - Methaemoglobinaemia [Fatal]
  - Respiratory failure [Fatal]
